FAERS Safety Report 6628400-X (Version None)
Quarter: 2010Q1

REPORT INFORMATION
  Report Type: 
  Country: None (occurrence: None)
  Receive Date: 20100311
  Receipt Date: 20100305
  Transmission Date: 20100710
  Serious: Yes (Congenital Anomaly)
  Sender: FDA-Public Use
  Company Number: US-SANOFI-AVENTIS-2010SA013021

PATIENT
  Sex: Female

DRUGS (1)
  1. LOVENOX [Suspect]
     Route: 064
     Dates: end: 20090101

REACTIONS (2)
  - CONGENITAL HYDRONEPHROSIS [None]
  - DRUG EXPOSURE DURING PREGNANCY [None]
